FAERS Safety Report 10654063 (Version 4)
Quarter: 2015Q3

REPORT INFORMATION
  Report Type: Spontaneous
  Country: US (occurrence: None)
  Receive Date: 20141212
  Receipt Date: 20150731
  Transmission Date: 20151125
  Serious: Yes (Other)
  Sender: FDA-Public Use
  Company Number: KAD201410-001278

PATIENT
  Sex: Female

DRUGS (4)
  1. RIBASPHERE RIBAPAK [Suspect]
     Active Substance: RIBAVIRIN
  2. SOVALDI [Suspect]
     Active Substance: SOFOSBUVIR
  3. VALTREX (VALACYCLOVIR) [Concomitant]
  4. PEGINTRON [Suspect]
     Active Substance: PEGINTERFERON ALFA-2B

REACTIONS (4)
  - Exposure via partner [None]
  - Pregnancy [None]
  - Maternal exposure before pregnancy [None]
  - Herpes simplex [None]

NARRATIVE: CASE EVENT DATE: 20140831
